FAERS Safety Report 4627708-7 (Version None)
Quarter: 2005Q2

REPORT INFORMATION
  Report Type: 
  Country: None (occurrence: None)
  Receive Date: 20050401
  Receipt Date: 20050309
  Transmission Date: 20051028
  Serious: Yes (Life-Threatening)
  Sender: FDA-Public Use
  Company Number: 5557

PATIENT
  Age: 66 Year
  Sex: Female

DRUGS (5)
  1. METOCLOPRAMIDE [Suspect]
     Indication: NAUSEA
     Dosage: 10 MG ONCE
     Route: 042
  2. FENTANYL [Concomitant]
  3. THIOPENTAL SODIUM [Concomitant]
  4. ROCURONIUM [Concomitant]
  5. ISOFLURANE [Concomitant]

REACTIONS (1)
  - CARDIAC ARREST [None]
